FAERS Safety Report 12203803 (Version 1)
Quarter: 2016Q1

REPORT INFORMATION
  Report Type: Spontaneous
  Country: US (occurrence: US)
  Receive Date: 20160323
  Receipt Date: 20160323
  Transmission Date: 20160526
  Serious: Yes (Other)
  Sender: FDA-Public Use
  Company Number: US-MALLINCKRODT-T201600965

PATIENT
  Sex: Male
  Weight: 91 kg

DRUGS (9)
  1. TOFRANIL [Suspect]
     Active Substance: IMIPRAMINE HYDROCHLORIDE
     Indication: DEPRESSION
     Dosage: 75 MG, QHS
     Route: 048
     Dates: start: 2001
  2. RITALIN [Concomitant]
     Active Substance: METHYLPHENIDATE HYDROCHLORIDE
     Dosage: UNK
  3. DEPAKOTE [Concomitant]
     Active Substance: DIVALPROEX SODIUM
  4. IMIPRAMINE PAMOATE. [Suspect]
     Active Substance: IMIPRAMINE PAMOATE
     Indication: DEPRESSION
     Dosage: 75 MG, QHS
     Route: 048
  5. EFFEXOR [Concomitant]
     Active Substance: VENLAFAXINE HYDROCHLORIDE
  6. GABITRIL [Concomitant]
     Active Substance: TIAGABINE HYDROCHLORIDE
  7. STRATTERA [Concomitant]
     Active Substance: ATOMOXETINE HYDROCHLORIDE
  8. ACIPHEX [Concomitant]
     Active Substance: RABEPRAZOLE SODIUM
  9. LEVOTHYROXINE. [Concomitant]
     Active Substance: LEVOTHYROXINE

REACTIONS (9)
  - Therapy cessation [Recovered/Resolved]
  - Abnormal behaviour [Recovered/Resolved]
  - Weight increased [Not Recovered/Not Resolved]
  - Psychogenic seizure [Not Recovered/Not Resolved]
  - Therapeutic response changed [Recovered/Resolved]
  - Feeling abnormal [Recovered/Resolved]
  - Delayed puberty [Recovered/Resolved]
  - Weight gain poor [Recovered/Resolved]
  - Blood pressure abnormal [Not Recovered/Not Resolved]
